FAERS Safety Report 4558916-1 (Version None)
Quarter: 2005Q1

REPORT INFORMATION
  Report Type: 
  Country: None (occurrence: None)
  Receive Date: 20050121
  Receipt Date: 20040707
  Transmission Date: 20050727
  Serious: Yes (Other)
  Sender: FDA-Public Use
  Company Number: US-MERCK-0407USA00560

PATIENT
  Age: 32 Year
  Sex: Male
  Weight: 76 kg

DRUGS (6)
  1. VIOXX [Suspect]
     Indication: PAIN
     Route: 048
     Dates: start: 20020522, end: 20020601
  2. VIOXX [Suspect]
     Route: 048
     Dates: start: 20020601, end: 20020601
  3. VIOXX [Suspect]
     Route: 048
     Dates: start: 20020728, end: 20020728
  4. VIOXX [Suspect]
     Indication: MUSCULOSKELETAL DISORDER
     Route: 048
     Dates: start: 20020522, end: 20020601
  5. VIOXX [Suspect]
     Route: 048
     Dates: start: 20020601, end: 20020601
  6. VIOXX [Suspect]
     Route: 048
     Dates: start: 20020728, end: 20020728

REACTIONS (12)
  - ANXIETY [None]
  - ARRHYTHMIA [None]
  - CARDIAC VALVE DISEASE [None]
  - CHEST PAIN [None]
  - CORONARY ARTERY ATHEROSCLEROSIS [None]
  - DEPRESSION [None]
  - HEADACHE [None]
  - HEPATIC ENZYME INCREASED [None]
  - PALPITATIONS [None]
  - PULMONARY EMBOLISM [None]
  - STRESS [None]
  - TACHYCARDIA [None]
